FAERS Safety Report 10220283 (Version 1)
Quarter: 2014Q2

REPORT INFORMATION
  Report Type: Spontaneous
  Country: US (occurrence: US)
  Receive Date: 20140606
  Receipt Date: 20140606
  Transmission Date: 20141212
  Serious: No
  Sender: FDA-Public Use
  Company Number: US-009507513-1405USA014283

PATIENT
  Sex: Female

DRUGS (7)
  1. CLARITIN [Suspect]
     Indication: RHINORRHOEA
     Dosage: 10 MG, QD
     Route: 048
  2. CLARITIN [Suspect]
     Indication: PRURITUS
  3. CLARITIN [Suspect]
     Indication: LACRIMATION INCREASED
  4. VITAMINS (UNSPECIFIED) [Concomitant]
  5. METFORMIN [Concomitant]
  6. CRESTOR [Concomitant]
  7. COREG [Concomitant]

REACTIONS (1)
  - Drug ineffective [Unknown]
